FAERS Safety Report 6110901-4 (Version None)
Quarter: 2009Q1

REPORT INFORMATION
  Report Type: 
  Country: None (occurrence: None)
  Receive Date: 20090311
  Receipt Date: 20081218
  Transmission Date: 20090719
  Serious: No
  Sender: FDA-Public Use
  Company Number: US-KINGPHARMUSA00001-K200801434

PATIENT
  Sex: Male
  Weight: 104 kg

DRUGS (5)
  1. ALTACE [Suspect]
     Indication: HYPERTENSION
     Dosage: 45 MG, QD
     Route: 048
  2. ACTOS [Suspect]
     Indication: DIABETES MELLITUS
  3. MEDICATION FOR HIGH BLOOD PRESSURE [Concomitant]
     Indication: HYPERTENSION
  4. BLOOD THINNERS [Concomitant]
  5. DIABETES MEDICATIONS [Concomitant]
     Indication: DIABETES MELLITUS

REACTIONS (4)
  - ANOREXIA [None]
  - HERPES ZOSTER [None]
  - PAIN [None]
  - WEIGHT INCREASED [None]
